FAERS Safety Report 11851597 (Version 1)
Quarter: 2015Q4

REPORT INFORMATION
  Report Type: Spontaneous
  Country: US (occurrence: US)
  Receive Date: 20151218
  Receipt Date: 20151218
  Transmission Date: 20160305
  Serious: No
  Sender: FDA-Public Use
  Company Number: US-JNJFOC-20151105122

PATIENT
  Age: 74 Year
  Sex: Female
  Weight: 43.09 kg

DRUGS (11)
  1. JUICE PLUS [Concomitant]
     Active Substance: DIETARY SUPPLEMENT
     Indication: NUTRITIONAL SUPPLEMENTATION
     Route: 065
  2. MUCINEX [Concomitant]
     Active Substance: GUAIFENESIN
     Indication: INCREASED VISCOSITY OF UPPER RESPIRATORY SECRETION
     Dosage: 1/2 DAILY
     Route: 065
  3. WOMENS ROGAINE UNSCENTED [Suspect]
     Active Substance: MINOXIDIL
     Indication: ALOPECIA
     Dosage: 1/2 CAPFUL
     Route: 061
     Dates: end: 20151103
  4. SYNTHROID [Concomitant]
     Active Substance: LEVOTHYROXINE SODIUM
     Indication: HYPOTHYROIDISM
     Dosage: 0.05MCG; 1-1.5, ALTERNATING
     Route: 065
  5. ANTI-ASTHMATICS [Concomitant]
     Active Substance: UNSPECIFIED INGREDIENT
     Indication: ASTHMA
     Dosage: ONE PUSH
     Route: 065
  6. FLUTICASONE [Concomitant]
     Active Substance: FLUTICASONE\FLUTICASONE PROPIONATE
     Indication: SINUS DISORDER
     Route: 065
  7. ALL OTHER THERAPEUTIC PRODUCTS [Concomitant]
     Active Substance: UNSPECIFIED INGREDIENT
     Indication: NUTRITIONAL SUPPLEMENTATION
     Route: 065
  8. WOMENS ROGAINE UNSCENTED [Suspect]
     Active Substance: MINOXIDIL
     Indication: ALOPECIA
     Dosage: A LITTLE LESS THAN 1/2 A CAPFUL
     Route: 061
  9. CALCIUM [Concomitant]
     Active Substance: CALCIUM
     Indication: OSTEOPOROSIS
     Route: 065
  10. GLUCOSAMINE [Concomitant]
     Active Substance: GLUCOSAMINE
     Indication: NUTRITIONAL SUPPLEMENTATION
     Route: 065
  11. ALL OTHER THERAPEUTIC PRODUCTS [Concomitant]
     Active Substance: UNSPECIFIED INGREDIENT
     Indication: SINUS DISORDER
     Route: 065

REACTIONS (1)
  - Alopecia [Not Recovered/Not Resolved]
